FAERS Safety Report 10384195 (Version 2)
Quarter: 2014Q3

REPORT INFORMATION
  Report Type: Spontaneous
  Country: US (occurrence: US)
  Receive Date: 20140814
  Receipt Date: 20140814
  Transmission Date: 20150326
  Serious: No
  Sender: FDA-Public Use
  Company Number: US-PFIZER INC-2014200650

PATIENT
  Sex: Female

DRUGS (1)
  1. LYRICA [Suspect]
     Active Substance: PREGABALIN
     Indication: RESTLESS LEGS SYNDROME
     Dosage: UNK

REACTIONS (6)
  - Off label use [Unknown]
  - Muscular weakness [Unknown]
  - Asthenia [Unknown]
  - Apathy [Unknown]
  - Irritability [Unknown]
  - Somnolence [Unknown]
